FAERS Safety Report 25626024 (Version 1)
Quarter: 2025Q3

REPORT INFORMATION
  Report Type: Spontaneous
  Country: EU (occurrence: EU)
  Receive Date: 20250731
  Receipt Date: 20250731
  Transmission Date: 20251021
  Serious: Yes (Life-Threatening)
  Sender: NOVO NORDISK
  Company Number: None

PATIENT
  Age: 64 Year
  Sex: Female
  Weight: 112 kg

DRUGS (1)
  1. SAXENDA [Suspect]
     Active Substance: LIRAGLUTIDE
     Indication: Weight control
     Dates: start: 20250629, end: 20250713

REACTIONS (4)
  - Retroperitoneal haemorrhage [Recovering/Resolving]
  - Cholelithiasis [Recovering/Resolving]
  - Aortic aneurysm rupture [Recovering/Resolving]
  - Gastroduodenal artery aneurysm [Recovering/Resolving]

NARRATIVE: CASE EVENT DATE: 20250712
